FAERS Safety Report 21351802 (Version 1)
Quarter: 2022Q3

REPORT INFORMATION
  Report Type: Spontaneous
  Country: CN (occurrence: CN)
  Receive Date: 20220919
  Receipt Date: 20220919
  Transmission Date: 20221027
  Serious: Yes (Other)
  Sender: FDA-Public Use
  Company Number: CN-SUN PHARMACEUTICAL INDUSTRIES LTD-2022R1-355224

PATIENT
  Age: 63 Year
  Sex: Female

DRUGS (4)
  1. CISPLATIN [Suspect]
     Active Substance: CISPLATIN
     Indication: Thymic carcinoma
     Dosage: 75 MILLIGRAM/SQ. METER ONE CYCLE
     Route: 065
  2. CISPLATIN [Suspect]
     Active Substance: CISPLATIN
     Indication: Metastasis
  3. DOCETAXEL [Suspect]
     Active Substance: DOCETAXEL
     Indication: Thymic carcinoma
     Dosage: 75 MILLIGRAM/SQ. METER, ONE CYCLE
     Route: 065
  4. DOCETAXEL [Suspect]
     Active Substance: DOCETAXEL
     Indication: Metastasis

REACTIONS (1)
  - Gastrointestinal disorder [Unknown]
